FAERS Safety Report 4641802-6 (Version None)
Quarter: 2005Q2

REPORT INFORMATION
  Report Type: 
  Country: None (occurrence: None)
  Receive Date: 20050420
  Receipt Date: 20050408
  Transmission Date: 20051028
  Serious: Yes (Other)
  Sender: FDA-Public Use
  Company Number: 141371USA

PATIENT
  Age: 12 Year
  Sex: Female
  Weight: 50 kg

DRUGS (1)
  1. PROPOFOL [Suspect]
     Indication: ENDOSCOPY
     Dosage: 70 MILLIGRAM INTRAVENOUS BOLUS
     Route: 040
     Dates: start: 20050207, end: 20050207

REACTIONS (3)
  - AMNESIA [None]
  - BLINDNESS TRANSIENT [None]
  - DIPLOPIA [None]
